FAERS Safety Report 18293344 (Version 1)
Quarter: 2020Q3

REPORT INFORMATION
  Report Type: Spontaneous
  Country: FR (occurrence: FR)
  Receive Date: 20200922
  Receipt Date: 20200922
  Transmission Date: 20201103
  Serious: Yes (Other)
  Sender: FDA-Public Use
  Company Number: FR-ALEXION-A202010885

PATIENT
  Age: 62 Year
  Sex: Female
  Weight: 60 kg

DRUGS (2)
  1. SOLIRIS [Suspect]
     Active Substance: ECULIZUMAB
     Indication: OFF LABEL USE
     Dosage: 900 MG, QW, 2 INJECTIONS
     Route: 065
     Dates: start: 20200723, end: 20200730
  2. SOLIRIS [Suspect]
     Active Substance: ECULIZUMAB
     Indication: ANTIPHOSPHOLIPID SYNDROME

REACTIONS (4)
  - Klebsiella sepsis [Unknown]
  - Off label use [Unknown]
  - Bacterial colitis [Unknown]
  - Septic shock [Unknown]

NARRATIVE: CASE EVENT DATE: 20200723
